FAERS Safety Report 7660426-X (Version None)
Quarter: 2011Q3

REPORT INFORMATION
  Report Type: 
  Country: None (occurrence: None)
  Receive Date: 20110805
  Receipt Date: 20110726
  Transmission Date: 20111222
  Serious: Yes (Hospitalization, Other)
  Sender: FDA-Public Use
  Company Number: US-ASTRAZENECA-2011SE44877

PATIENT
  Sex: Female

DRUGS (41)
  1. ZESTRIL [Suspect]
     Indication: BLOOD PRESSURE
     Route: 048
  2. NORVASC [Concomitant]
     Indication: BLOOD PRESSURE
     Dosage: 5 MG AT NOON
  3. PRAVACHOL [Concomitant]
     Indication: HYPERCHOLESTEROLAEMIA
  4. PROMETHAZINE [Concomitant]
     Indication: NAUSEA
     Dosage: 25 MG AS REQIRED EVERY 4 HRS
  5. TYLENOL-500 [Concomitant]
     Indication: PAIN
     Dosage: 500 MG 2 CAPSULE THREE TIMES A DAY
  6. POTASSIUM CL [Concomitant]
     Indication: BLOOD POTASSIUM DECREASED
     Dosage: 10 MEQ 1 IN MORNING EVERY OTHER DAY
  7. CO Q10 [Concomitant]
     Indication: CARDIAC DISORDER
  8. LANTUS [Concomitant]
     Indication: DIABETES MELLITUS
     Dosage: 14 UNITS AT BEDTIME
  9. PRILOSEC [Concomitant]
     Indication: ABDOMINAL DISCOMFORT
  10. TOPROL-XL [Suspect]
     Indication: BLOOD PRESSURE
     Route: 048
  11. LASIX [Concomitant]
     Indication: BLOOD PRESSURE
  12. CALCIUM CITRATE [Concomitant]
     Dosage: 600MG CALC+400 IU D AT BEDTIME
  13. ZOFRAN [Concomitant]
     Indication: NAUSEA
     Dosage: 4 MG 1-2 EVERY 6 HRS AS REQUIRED
  14. LIDOCAINE [Concomitant]
     Indication: MUSCULOSKELETAL PAIN
     Dosage: AS REQUIRED
  15. DECADRON [Concomitant]
     Indication: BRAIN OEDEMA
  16. LIDOCAINE [Concomitant]
     Indication: BACK PAIN
     Dosage: AS REQUIRED
  17. AMBIEN [Concomitant]
     Indication: INSOMNIA
  18. GAS X [Concomitant]
     Indication: FLATULENCE
  19. CENTRUM MULTIVITAMIN [Concomitant]
     Indication: HYPOVITAMINOSIS
     Dosage: 1 DF AT NOON
  20. CALCIUM CITRATE [Concomitant]
     Indication: BONE DISORDER
     Dosage: 600MG CALC+400 IU D AT NOON
  21. WARFARIN SODIUM [Concomitant]
     Indication: ANTICOAGULANT THERAPY
     Dosage: 1-4 MG AT 6 PM
  22. BONIVA [Concomitant]
     Indication: BONE DISORDER
     Dosage: 150 MG 1ST OF MONTH
  23. REGLAN [Concomitant]
     Indication: NAUSEA
  24. VISTARIL [Concomitant]
     Indication: PRURITUS
     Dosage: 25 MG 1 EVERY 6 HR AS REQUIRED
  25. HUMALOG [Concomitant]
     Indication: DIABETES MELLITUS
     Dosage: BEFORE MEALS
  26. ARICEPT [Concomitant]
     Indication: MEMORY IMPAIRMENT
  27. SEROQUEL [Suspect]
     Indication: SLEEP DISORDER
     Route: 048
  28. ULTRAM [Concomitant]
     Indication: PAIN
     Dosage: 50MG 1-2 4X DAILY AS REQUIRED
  29. IMODIUM [Concomitant]
     Indication: DIARRHOEA
  30. NEURONTIN [Concomitant]
     Indication: PERIPHERAL COLDNESS
  31. LASIX [Concomitant]
     Indication: SWELLING
  32. METFORMAN HCL [Concomitant]
     Indication: DIABETES MELLITUS
  33. DEPAKOTE [Concomitant]
     Indication: AFFECTIVE DISORDER
     Dosage: 500 MG 2 AT BED TIME
  34. NEURONTIN [Concomitant]
     Indication: NERVOUSNESS
  35. ZOCOR [Concomitant]
     Indication: HYPERCHOLESTEROLAEMIA
  36. GINGER ROOT [Concomitant]
     Indication: NAUSEA
  37. SEROQUEL [Suspect]
     Indication: NERVOUSNESS
     Route: 048
  38. MACRODANTIN [Concomitant]
     Indication: PROPHYLAXIS URINARY TRACT INFECTION
     Dosage: 50 MG CAMYL AT BEDTIME
  39. PROAIR HFA [Concomitant]
     Indication: WHEEZING
     Dosage: 90HFA 2 PUFFS EVERY 4 HRS AS REQUIRED
  40. MIRALAX [Concomitant]
     Indication: BOWEL MOVEMENT IRREGULARITY
     Dosage: 17GM 1 CAPFUL IN THE MORNING
  41. PERCOCET [Concomitant]
     Indication: PAIN
     Dosage: 1/2-1 EVERY 4 HRS

REACTIONS (28)
  - PAIN [None]
  - DIARRHOEA [None]
  - ARTHRALGIA [None]
  - OFF LABEL USE [None]
  - BACK PAIN [None]
  - SLEEP DISORDER [None]
  - DIABETES MELLITUS [None]
  - ANXIETY [None]
  - WHEEZING [None]
  - BRAIN OEDEMA [None]
  - MEMORY IMPAIRMENT [None]
  - NEOPLASM [None]
  - COLONIC STENOSIS [None]
  - ABSCESS INTESTINAL [None]
  - COLOSTOMY [None]
  - DRUG HYPERSENSITIVITY [None]
  - BLOOD CHOLESTEROL ABNORMAL [None]
  - AFFECTIVE DISORDER [None]
  - DERMATITIS CONTACT [None]
  - NAUSEA [None]
  - FEMALE GENITAL TRACT FISTULA [None]
  - FLATULENCE [None]
  - SWELLING [None]
  - BLOOD POTASSIUM DECREASED [None]
  - MUSCULOSKELETAL PAIN [None]
  - LATEX ALLERGY [None]
  - INSOMNIA [None]
  - PRURITUS [None]
